FAERS Safety Report 9544259 (Version 3)
Quarter: 2013Q3

REPORT INFORMATION
  Report Type: Report from Study
  Country: FR (occurrence: FR)
  Receive Date: 20130923
  Receipt Date: 20130926
  Transmission Date: 20140515
  Serious: Yes (Other)
  Sender: FDA-Public Use
  Company Number: FR-GILEAD-2013-0083519

PATIENT
  Age: 65 Year
  Sex: Female

DRUGS (2)
  1. EMTRICITABINE/RILPIVIRINE/TENOFOVIR DF [Suspect]
     Indication: HIV INFECTION
     Dosage: UNK
     Route: 065
     Dates: start: 20121211
  2. PRAVASTATIN [Concomitant]

REACTIONS (3)
  - Viral mutation identified [Unknown]
  - Virologic failure [Unknown]
  - Drug ineffective [Unknown]
